FAERS Safety Report 13627079 (Version 1)
Quarter: 2017Q2

REPORT INFORMATION
  Report Type: Spontaneous
  Country: US (occurrence: US)
  Receive Date: 20170607
  Receipt Date: 20170607
  Transmission Date: 20170830
  Serious: Yes (Disabling, Other)
  Sender: FDA-Public Use
  Company Number: None

PATIENT
  Age: 25 Day
  Sex: Female
  Weight: 84.15 kg

DRUGS (4)
  1. PROBIOTIC [Concomitant]
     Active Substance: PROBIOTICS NOS
  2. MULTIPLE VITAMIN [Concomitant]
     Active Substance: VITAMINS
  3. LEVOFLOXACIN. [Suspect]
     Active Substance: LEVOFLOXACIN
     Indication: BRONCHITIS
     Dosage: ?          QUANTITY:1 TABLET(S);?DAILY ORAL
     Route: 048
     Dates: start: 20170324, end: 20170330
  4. NAPROXEN. [Concomitant]
     Active Substance: NAPROXEN

REACTIONS (1)
  - Meniscus injury [None]

NARRATIVE: CASE EVENT DATE: 20170325
